FAERS Safety Report 14091837 (Version 2)
Quarter: 2017Q4

REPORT INFORMATION
  Report Type: Report from Study
  Country: GB (occurrence: GB)
  Receive Date: 20171016
  Receipt Date: 20171220
  Transmission Date: 20180321
  Serious: Yes (Hospitalization)
  Sender: FDA-Public Use
  Company Number: PHHO2017GB013983

PATIENT
  Age: 31 Year
  Sex: Male
  Weight: 121 kg

DRUGS (6)
  1. AIN457 [Suspect]
     Active Substance: SECUKINUMAB
     Dosage: 1 ML, SYRINGE
     Route: 058
     Dates: start: 20171206
  2. TRAMADOL. [Concomitant]
     Active Substance: TRAMADOL
     Indication: PAIN
     Dosage: 200 MG, TID
     Route: 065
     Dates: start: 20150905
  3. ETORICOXIB [Concomitant]
     Active Substance: ETORICOXIB
     Indication: ANKYLOSING SPONDYLITIS
     Dosage: 120 MG, QD
     Route: 065
     Dates: start: 201511
  4. CITALOPRAM [Concomitant]
     Active Substance: CITALOPRAM HYDROBROMIDE
     Indication: ANXIETY
     Dosage: 40 MG, QD
     Route: 065
     Dates: start: 201411
  5. AIN457 [Suspect]
     Active Substance: SECUKINUMAB
     Indication: ANKYLOSING SPONDYLITIS
     Dosage: 1 ML, SYRINGE
     Route: 058
     Dates: start: 20130320, end: 20130817
  6. PARACETAMOL [Concomitant]
     Active Substance: ACETAMINOPHEN
     Indication: PAIN
     Dosage: 500 MG, PRN
     Route: 065
     Dates: start: 201709

REACTIONS (1)
  - Arthritis bacterial [Recovered/Resolved]

NARRATIVE: CASE EVENT DATE: 20171004
